FAERS Safety Report 4553449-0 (Version None)
Quarter: 2005Q1

REPORT INFORMATION
  Report Type: 
  Country: None (occurrence: None)
  Receive Date: 20050113
  Receipt Date: 20041229
  Transmission Date: 20050727
  Serious: Yes (Hospitalization, Other)
  Sender: FDA-Public Use
  Company Number: A-US2004-08481

PATIENT
  Age: 73 Year
  Sex: Female

DRUGS (10)
  1. TRACLEER [Suspect]
     Indication: PULMONARY HYPERTENSION
     Dosage: 62.5 MG, BID, ORAL
     Route: 048
     Dates: start: 20031203
  2. CLONIDINE HCL [Concomitant]
  3. PROTONIX [Concomitant]
  4. GLIPIZIDE [Concomitant]
  5. PLAVIX [Concomitant]
  6. SYNTHROID [Concomitant]
  7. DILTIAZEM [Concomitant]
  8. FUROSEMIDE (FUROSEMIDE) [Concomitant]
  9. ACTOS [Concomitant]
  10. POTASSIUM (POTASSIUM) [Concomitant]

REACTIONS (8)
  - ANAEMIA [None]
  - ASTHENIA [None]
  - BRONCHITIS [None]
  - CATHETER SITE INFECTION [None]
  - HYPOTENSION [None]
  - JOINT SWELLING [None]
  - NASOPHARYNGITIS [None]
  - OEDEMA PERIPHERAL [None]
